FAERS Safety Report 6190393-X (Version None)
Quarter: 2009Q2

REPORT INFORMATION
  Report Type: 
  Country: None (occurrence: None)
  Receive Date: 20090514
  Receipt Date: 20090511
  Transmission Date: 20091009
  Serious: Yes (Hospitalization)
  Sender: FDA-Public Use
  Company Number: B0573317A

PATIENT
  Sex: Female

DRUGS (5)
  1. DEROXAT [Suspect]
     Indication: MAJOR DEPRESSION
     Dosage: 20MG UNKNOWN
     Route: 048
     Dates: end: 20081030
  2. DEPAMIDE [Suspect]
     Indication: MAJOR DEPRESSION
     Dosage: 300MG TWICE PER DAY
     Route: 048
     Dates: end: 20081029
  3. LEXOMIL [Suspect]
     Indication: ANXIETY
     Route: 048
  4. IMODIUM [Suspect]
     Indication: DIARRHOEA
     Dosage: 2MG SIX TIMES PER DAY
     Route: 048
  5. XATRAL LP [Concomitant]
     Dosage: 10MG PER DAY
     Route: 065

REACTIONS (5)
  - BONE MARROW MYELOGRAM ABNORMAL [None]
  - EATING DISORDER [None]
  - FOLATE DEFICIENCY [None]
  - THROMBOCYTOPENIA [None]
  - VITAMIN B12 DEFICIENCY [None]
